FAERS Safety Report 14754902 (Version 2)
Quarter: 2018Q2

REPORT INFORMATION
  Report Type: Report from Study
  Country: US (occurrence: US)
  Receive Date: 20180413
  Receipt Date: 20180515
  Transmission Date: 20180711
  Serious: Yes (Hospitalization, Other)
  Sender: FDA-Public Use
  Company Number: US-AMGEN-USASL2018048680

PATIENT
  Age: 53 Year
  Sex: Female

DRUGS (2)
  1. ENBREL [Suspect]
     Active Substance: ETANERCEPT
     Indication: RHEUMATOID ARTHRITIS
     Dosage: 50 MG, QWK
     Route: 065
  2. MUCINEX [Suspect]
     Active Substance: GUAIFENESIN
     Indication: PRODUCT USED FOR UNKNOWN INDICATION
     Dosage: UNK
     Route: 065

REACTIONS (8)
  - Gallbladder operation [Unknown]
  - Gait inability [Unknown]
  - Self-injurious ideation [Unknown]
  - Hypersensitivity [Unknown]
  - Ulcer [Unknown]
  - Bipolar disorder [Unknown]
  - Diplopia [Unknown]
  - Rash [Unknown]

NARRATIVE: CASE EVENT DATE: 2018
